FAERS Safety Report 5931731-X (Version None)
Quarter: 2008Q4

REPORT INFORMATION
  Report Type: 
  Country: None (occurrence: None)
  Receive Date: 20081009
  Receipt Date: 20080116
  Transmission Date: 20090506
  Serious: Yes (Hospitalization, Other)
  Sender: FDA-Public Use
  Company Number: PHEH2008US00477

PATIENT
  Age: 57 Year
  Sex: Female
  Weight: 62.6 kg

DRUGS (7)
  1. ZOMETA [Suspect]
     Indication: METASTASES TO BONE
     Dosage: 4 MG EVERY 4 WEEKS, INFUSION
     Dates: start: 20061010, end: 20071114
  2. ABRAXANE [Concomitant]
  3. CALCIUM W/VITAMIN D NOS (CALCIUM, VITAMIN D NOS) [Concomitant]
  4. MULTIVITAMINS (ASCORBIC ACID, ERGOCALCIFEROL, FOLIC ACID, NICOTINAMIDE [Concomitant]
  5. GEMZAR [Concomitant]
  6. FASLODEX [Concomitant]
  7. CARBOPLATIN [Concomitant]

REACTIONS (12)
  - ANAEMIA [None]
  - ARTHRALGIA [None]
  - ASCITES [None]
  - BONE DISORDER [None]
  - CHONDROMALACIA [None]
  - GAIT DISTURBANCE [None]
  - HYPERCALCAEMIA OF MALIGNANCY [None]
  - JOINT EFFUSION [None]
  - MUSCULAR WEAKNESS [None]
  - NEOPLASM MALIGNANT [None]
  - OSTEOARTHRITIS [None]
  - OSTEONECROSIS [None]
